FAERS Safety Report 5403859-4 (Version None)
Quarter: 2007Q3

REPORT INFORMATION
  Report Type: 
  Country: None (occurrence: None)
  Receive Date: 20070802
  Receipt Date: 20070801
  Transmission Date: 20080115
  Serious: Yes (Death, Life-Threatening)
  Sender: FDA-Public Use
  Company Number: BR-BRISTOL-MYERS SQUIBB COMPANY-13861620

PATIENT
  Age: 40 Year
  Sex: Female
  Weight: 48 kg

DRUGS (2)
  1. CARBOPLATIN [Suspect]
     Indication: SMALL CELL LUNG CANCER STAGE UNSPECIFIED
     Route: 042
     Dates: start: 20070704, end: 20070704
  2. ETOPOSIDE [Suspect]
     Indication: SMALL CELL LUNG CANCER STAGE UNSPECIFIED
     Route: 042
     Dates: start: 20070706, end: 20070706

REACTIONS (1)
  - HAEMOPTYSIS [None]
